FAERS Safety Report 5424934-4 (Version None)
Quarter: 2007Q3

REPORT INFORMATION
  Report Type: 
  Country: None (occurrence: None)
  Receive Date: 20070824
  Receipt Date: 20070820
  Transmission Date: 20080115
  Serious: Yes (Death)
  Sender: FDA-Public Use
  Company Number: US-BRACCO-BDI-010078

PATIENT

DRUGS (1)
  1. PROHANCE [Suspect]
     Route: 050

REACTIONS (1)
  - DEATH [None]
